FAERS Safety Report 19956138 (Version 1)
Quarter: 2021Q4

REPORT INFORMATION
  Report Type: Other
  Country: US (occurrence: US)
  Receive Date: 20211014
  Receipt Date: 20211014
  Transmission Date: 20220303
  Serious: Yes (Hospitalization, Other)
  Sender: FDA-Public Use
  Company Number: US-NAVINTA LLC-000201

PATIENT
  Age: 24 Year
  Sex: Male

DRUGS (4)
  1. REMIFENTANIL [Interacting]
     Active Substance: REMIFENTANIL
     Indication: Anaesthesia
     Dosage: 200 MICROG OF REMIFENTANIL
  2. TESTOSTERONE [Interacting]
     Active Substance: TESTOSTERONE
     Indication: Transgender operation
  3. METHOHEXITAL [Concomitant]
     Active Substance: METHOHEXITAL
     Indication: Anaesthesia
     Dosage: 40 MG OF METHOHEXITAL
  4. SUCCINYLCHOLINE [Concomitant]
     Active Substance: SUCCINYLCHOLINE
     Indication: Anaesthesia
     Dosage: 100 MG OF SUCCINYLCHOLINE

REACTIONS (4)
  - Bradycardia [Recovered/Resolved]
  - Cardiac arrest [Recovered/Resolved]
  - Drug interaction [Unknown]
  - Rhythm idioventricular [Recovered/Resolved]
